FAERS Safety Report 5937493-4 (Version None)
Quarter: 2008Q4

REPORT INFORMATION
  Report Type: 
  Country: None (occurrence: None)
  Receive Date: 20081031
  Receipt Date: 20081028
  Transmission Date: 20090506
  Serious: Yes (Other)
  Sender: FDA-Public Use
  Company Number: D0058573A

PATIENT
  Age: 69 Year
  Sex: Female
  Weight: 60 kg

DRUGS (9)
  1. ARIXTRA [Suspect]
     Dosage: 2.5MG PER DAY
     Route: 065
     Dates: start: 20080809, end: 20080811
  2. ASPIRIN [Concomitant]
     Dosage: 100MG IN THE MORNING
     Route: 065
  3. BELOC ZOK [Concomitant]
     Route: 065
  4. DELIX PLUS [Concomitant]
     Dosage: 2.5MG IN THE MORNING
     Route: 065
  5. CORVATON [Concomitant]
     Dosage: 8MG AT NIGHT
     Route: 065
  6. ISOSORBIDE DINITRATE [Concomitant]
     Dosage: 40MG IN THE MORNING
     Route: 065
  7. TOREM [Concomitant]
     Dosage: 5MG IN THE MORNING
     Route: 065
  8. SIMVASTATIN [Concomitant]
     Dosage: 20MG AT NIGHT
     Route: 065
  9. NEXIUM [Concomitant]
     Dosage: 20MG IN THE MORNING
     Route: 065

REACTIONS (1)
  - LEUKOCYTOCLASTIC VASCULITIS [None]
